FAERS Safety Report 10040333 (Version 3)
Quarter: 2014Q2

REPORT INFORMATION
  Report Type: Spontaneous
  Country: US (occurrence: US)
  Receive Date: 20140327
  Receipt Date: 20140411
  Transmission Date: 20141212
  Serious: Yes (Hospitalization)
  Sender: FDA-Public Use
  Company Number: US-BIOGENIDEC-2013BI104139

PATIENT
  Age: 59 Year
  Sex: Female
  Weight: 110 kg

DRUGS (19)
  1. ATIVAN [Concomitant]
     Indication: NUCLEAR MAGNETIC RESONANCE IMAGING
     Route: 048
  2. SETRALINE [Concomitant]
     Indication: ANXIETY
     Route: 048
  3. SETRALINE [Concomitant]
     Indication: DEPRESSION
     Route: 048
  4. KLONOPIN [Concomitant]
     Indication: ANXIETY
  5. ZOLPIDEM [Concomitant]
     Indication: INITIAL INSOMNIA
     Route: 048
  6. CLONAZEPAM [Concomitant]
     Route: 048
  7. CALCIUM 1200 [Concomitant]
     Route: 048
  8. VITAMIN D3 [Concomitant]
     Route: 048
  9. DONEPEZIL [Concomitant]
     Route: 048
  10. METHADONE [Concomitant]
     Route: 048
  11. HYDROCODONE AND ACETAMINOPHEN [Concomitant]
     Route: 048
  12. TRAMADOL [Concomitant]
     Route: 048
  13. TRAZODONE [Concomitant]
     Route: 048
  14. AVONEX [Suspect]
     Indication: MULTIPLE SCLEROSIS
     Route: 030
     Dates: start: 20130621, end: 201306
  15. AVONEX [Suspect]
     Indication: MULTIPLE SCLEROSIS
     Route: 030
     Dates: start: 20130722
  16. ARICEPT [Concomitant]
     Indication: MEMORY IMPAIRMENT
  17. VESICARE [Concomitant]
     Indication: MICTURITION URGENCY
     Route: 048
  18. PHENTERMINE HCL [Concomitant]
     Route: 048
  19. AMBIEN [Concomitant]
     Indication: INITIAL INSOMNIA

REACTIONS (4)
  - Anaemia [Recovered/Resolved]
  - Haemorrhage [Unknown]
  - Influenza [Recovered/Resolved]
  - Fatigue [Recovered/Resolved]
